FAERS Safety Report 13966312 (Version 1)
Quarter: 2017Q3

REPORT INFORMATION
  Report Type: Spontaneous
  Country: US (occurrence: US)
  Receive Date: 20170913
  Receipt Date: 20170913
  Transmission Date: 20171128
  Serious: Yes (Other)
  Sender: FDA-Public Use
  Company Number: US-MAYNE PHARMA-2017MYN001609

PATIENT

DRUGS (2)
  1. ERYTHROMYCIN. [Suspect]
     Active Substance: ERYTHROMYCIN
     Indication: IMPETIGO
     Dosage: 2 DF, QD, FOR A MONTH
     Dates: start: 20170623
  2. ERYTHROMYCIN DELAYED-RELEASE [Suspect]
     Active Substance: ERYTHROMYCIN
     Indication: IMPETIGO
     Dosage: 1 DF, QID FOR 10 DAYS
     Route: 048
     Dates: start: 20170517, end: 20170527

REACTIONS (7)
  - Balance disorder [Not Recovered/Not Resolved]
  - Micturition disorder [Not Recovered/Not Resolved]
  - Speech disorder [Not Recovered/Not Resolved]
  - Gait disturbance [Not Recovered/Not Resolved]
  - Paraesthesia [Not Recovered/Not Resolved]
  - Slow speech [Not Recovered/Not Resolved]
  - Hypoaesthesia oral [Not Recovered/Not Resolved]

NARRATIVE: CASE EVENT DATE: 20170517
